FAERS Safety Report 19276094 (Version 3)
Quarter: 2022Q1

REPORT INFORMATION
  Report Type: Spontaneous
  Country: IT (occurrence: IT)
  Receive Date: 20210520
  Receipt Date: 20220211
  Transmission Date: 20220423
  Serious: Yes (Other)
  Sender: FDA-Public Use
  Company Number: IT-MINISAL02-726108

PATIENT
  Age: 19 Year
  Sex: Female

DRUGS (3)
  1. ACETAMINOPHEN [Suspect]
     Active Substance: ACETAMINOPHEN
     Indication: Product used for unknown indication
     Dosage: 5 GRAM IN TOTAL
     Route: 048
     Dates: start: 20210324, end: 20210324
  2. IBUPROFEN [Suspect]
     Active Substance: IBUPROFEN
     Dosage: 4 GRAM(TOTAL)
     Route: 048
     Dates: start: 20210324, end: 20210324
  3. NAPROXEN SODIUM [Suspect]
     Active Substance: NAPROXEN SODIUM
     Indication: Product used for unknown indication
     Dosage: 2.2 GRAM(TOTAL)
     Route: 048
     Dates: start: 20210324, end: 20210324

REACTIONS (3)
  - Abdominal pain upper [Recovering/Resolving]
  - Intentional self-injury [Recovering/Resolving]
  - Drug abuse [Recovering/Resolving]

NARRATIVE: CASE EVENT DATE: 20210325
